FAERS Safety Report 4530301-8 (Version None)
Quarter: 2004Q4

REPORT INFORMATION
  Report Type: 
  Country: None (occurrence: None)
  Receive Date: 20041216
  Receipt Date: 20041216
  Transmission Date: 20050328
  Serious: Yes (Hospitalization)
  Sender: FDA-Public Use
  Company Number: None

PATIENT
  Age: 57 Year
  Sex: Male
  Weight: 102.9665 kg

DRUGS (5)
  1. AVALIDE [Suspect]
     Indication: DIABETES MELLITUS
     Dosage: 12.5/300MG   DAILY   ORAL
     Route: 048
     Dates: start: 20030923, end: 20040723
  2. AVALIDE [Suspect]
     Indication: HYPERTENSION
     Dosage: 12.5/300MG   DAILY   ORAL
     Route: 048
     Dates: start: 20030923, end: 20040723
  3. NSAIDS [Concomitant]
  4. ALLOPURINOL [Concomitant]
  5. COLCHICINE [Concomitant]

REACTIONS (1)
  - HYPERKALAEMIA [None]
